FAERS Safety Report 6278542-6 (Version None)
Quarter: 2009Q3

REPORT INFORMATION
  Report Type: 
  Country: None (occurrence: None)
  Receive Date: 20090722
  Receipt Date: 20080724
  Transmission Date: 20100115
  Serious: No
  Sender: FDA-Public Use
  Company Number: US-BAUSCH-2008BL003281

PATIENT
  Age: 29 Year
  Sex: Female

DRUGS (9)
  1. OPCON-A [Suspect]
     Indication: OCULAR HYPERAEMIA
     Route: 047
     Dates: start: 20080501, end: 20080501
  2. OPCON-A [Suspect]
     Indication: EYE PAIN
     Route: 047
     Dates: start: 20080501, end: 20080501
  3. OPCON-A [Suspect]
     Indication: HYPERSENSITIVITY
     Route: 047
     Dates: start: 20080501, end: 20080501
  4. OPCON-A [Suspect]
     Indication: EYE PRURITUS
     Route: 047
     Dates: start: 20080501, end: 20080501
  5. OPCON-A [Suspect]
     Route: 047
     Dates: start: 20080723, end: 20080723
  6. OPCON-A [Suspect]
     Route: 047
     Dates: start: 20080723, end: 20080723
  7. OPCON-A [Suspect]
     Route: 047
     Dates: start: 20080723, end: 20080723
  8. OPCON-A [Suspect]
     Route: 047
     Dates: start: 20080723, end: 20080723
  9. CALCIUM [Concomitant]
     Route: 048

REACTIONS (4)
  - EYE SWELLING [None]
  - MEDICATION ERROR [None]
  - SWELLING FACE [None]
  - URTICARIA [None]
